FAERS Safety Report 5254843-5 (Version None)
Quarter: 2007Q1

REPORT INFORMATION
  Report Type: 
  Country: None (occurrence: None)
  Receive Date: 20070302
  Receipt Date: 20070302
  Transmission Date: 20070707
  Serious: Yes (Other)
  Sender: FDA-Public Use
  Company Number: None

PATIENT
  Age: 78 Year
  Sex: Male
  Weight: 52 kg

DRUGS (1)
  1. AMIODARONE HCL [Suspect]
     Dosage: 200 MG DAILY PO
     Route: 048
     Dates: start: 20061020, end: 20070226

REACTIONS (3)
  - HAEMATOMA [None]
  - HYPERTHYROIDISM [None]
  - INTERNATIONAL NORMALISED RATIO INCREASED [None]
